FAERS Safety Report 18703411 (Version 1)
Quarter: 2021Q1

REPORT INFORMATION
  Report Type: Spontaneous
  Country: US (occurrence: US)
  Receive Date: 20210105
  Receipt Date: 20210105
  Transmission Date: 20210419
  Serious: No
  Sender: FDA-Public Use
  Company Number: US-MYLANLABS-2020M1100041

PATIENT
  Sex: Female
  Weight: 64 kg

DRUGS (1)
  1. SCOPOLAMINE TRANSDERMAL SYSTEM [Suspect]
     Active Substance: SCOPOLAMINE
     Indication: MOTION SICKNESS
     Dosage: 1 MILLIGRAM, Q3D EVERY 3 DAYS
     Route: 062

REACTIONS (3)
  - Product adhesion issue [Recovering/Resolving]
  - Wrong technique in device usage process [Unknown]
  - Inappropriate schedule of product administration [Recovering/Resolving]
